FAERS Safety Report 5869875-3 (Version None)
Quarter: 2008Q3

REPORT INFORMATION
  Report Type: 
  Country: None (occurrence: None)
  Receive Date: 20080902
  Receipt Date: 20080819
  Transmission Date: 20090109
  Serious: Yes (Hospitalization)
  Sender: FDA-Public Use
  Company Number: 032067

PATIENT
  Age: 16 Year
  Sex: Female
  Weight: 63.5 kg

DRUGS (3)
  1. APRI(DESOGESTREL, ETHINYLESTRADIOL) TABLET, 0.15/0.03MG [Suspect]
     Indication: MENORRHAGIA
     Dosage: 1 TABLET, QD, ORAL
     Route: 048
     Dates: start: 20071101
  2. APRI(DESOGESTREL, ETHINYLESTRADIOL) TABLET, 0.15/0.03MG [Suspect]
     Indication: OFF LABEL USE
     Dosage: 1 TABLET, QD, ORAL
     Route: 048
     Dates: start: 20071101
  3. APRI(DESOGESTREL, ETHINYLESTRADIOL) TABLET, 0.15/0.03MG [Suspect]
     Indication: ORAL CONTRACEPTION
     Dosage: 1 TABLET, QD, ORAL
     Route: 048
     Dates: start: 20071101

REACTIONS (9)
  - CHEST PAIN [None]
  - DRUG INEFFECTIVE [None]
  - OFF LABEL USE [None]
  - PAIN IN EXTREMITY [None]
  - PLATELET COUNT INCREASED [None]
  - PULMONARY EMBOLISM [None]
  - SKIN DISCOLOURATION [None]
  - THROMBOSIS [None]
  - WHITE BLOOD CELL COUNT INCREASED [None]
